FAERS Safety Report 17473020 (Version 1)
Quarter: 2020Q3

REPORT INFORMATION
  Report Type: Spontaneous
  Country: DE (occurrence: DE)
  Receive Date: 20200228
  Receipt Date: 20200228
  Transmission Date: 20201105
  Serious: Yes (Other)
  Sender: FDA-Public Use
  Company Number: DE-ROCHE-2558893

PATIENT
  Age: 71 Year
  Sex: Female

DRUGS (8)
  1. BONDIOL [Concomitant]
     Active Substance: ALFACALCIDOL
     Route: 048
  2. FEMARA [Concomitant]
     Active Substance: LETROZOLE
     Route: 048
     Dates: start: 1995
  3. BASAL?H?INSULIN [Concomitant]
     Indication: TYPE 1 DIABETES MELLITUS
     Route: 058
  4. IBANDRONIC ACID. [Suspect]
     Active Substance: IBANDRONIC ACID
     Indication: BREAST CANCER METASTATIC
     Route: 042
     Dates: start: 20001030
  5. NEORECORMON [Concomitant]
     Active Substance: ERYTHROPOIETIN
     Indication: ANAEMIA
     Route: 058
     Dates: start: 200002
  6. FUROSEMIDE. [Concomitant]
     Active Substance: FUROSEMIDE
     Indication: POLYURIA
     Route: 048
  7. TRAMAL [Concomitant]
     Active Substance: TRAMADOL
     Indication: BONE PAIN
     Route: 048
     Dates: start: 200102
  8. NEFROCARNIT [Concomitant]
     Indication: DIALYSIS
     Dosage: WITH DIALYSIS (1 DOSAGE FORMS)
     Route: 042
     Dates: start: 200007

REACTIONS (1)
  - Transaminases increased [Not Recovered/Not Resolved]
